FAERS Safety Report 5838438-8 (Version None)
Quarter: 2008Q3

REPORT INFORMATION
  Report Type: 
  Country: None (occurrence: None)
  Receive Date: 20080808
  Receipt Date: 20080731
  Transmission Date: 20090109
  Serious: Yes (Other)
  Sender: FDA-Public Use
  Company Number: US-JNJFOC-20080800836

PATIENT
  Sex: Male
  Weight: 83.92 kg

DRUGS (6)
  1. LEVAQUIN [Suspect]
     Indication: LARGE INTESTINE PERFORATION
     Route: 048
  2. FLOMAX [Concomitant]
     Indication: BENIGN PROSTATIC HYPERPLASIA
     Route: 048
  3. ZOCOR [Concomitant]
     Indication: HYPERLIPIDAEMIA
     Route: 048
  4. SYMBICORT [Concomitant]
     Indication: ASTHMA
     Route: 055
  5. RESTORIL [Concomitant]
     Dosage: DAILY AT BEDTIME AS NEEDED
     Route: 048
  6. NEXIUM [Concomitant]
     Indication: GASTROOESOPHAGEAL REFLUX DISEASE
     Route: 048

REACTIONS (3)
  - ANOREXIA [None]
  - DYSGEUSIA [None]
  - WEIGHT DECREASED [None]
